FAERS Safety Report 20433683 (Version 1)
Quarter: 2022Q1

REPORT INFORMATION
  Report Type: Report from Study
  Country: US (occurrence: US)
  Receive Date: 20220205
  Receipt Date: 20220205
  Transmission Date: 20220423
  Serious: Yes (Death, Other)
  Sender: FDA-Public Use
  Company Number: US-SA-SAC20210901000405

PATIENT
  Age: 63 Year
  Sex: Male

DRUGS (2)
  1. INSULIN GLARGINE [Suspect]
     Active Substance: INSULIN GLARGINE
     Indication: Diabetes mellitus
     Dosage: 40 IU, Q12H
     Route: 058
  2. INSULIN GLARGINE [Suspect]
     Active Substance: INSULIN GLARGINE
     Dosage: 50U QAM (EVERY MORNING)  AND 40U QPM (EVERY EVENING)
     Route: 058

REACTIONS (3)
  - Death [Fatal]
  - Product prescribing issue [Unknown]
  - Inappropriate schedule of product administration [Unknown]
